FAERS Safety Report 24605717 (Version 6)
Quarter: 2025Q2

REPORT INFORMATION
  Report Type: Report from Study
  Country: TH (occurrence: TH)
  Receive Date: 20241111
  Receipt Date: 20250626
  Transmission Date: 20250717
  Serious: Yes (Hospitalization, Other)
  Sender: TAKEDA
  Company Number: TH-TAKEDA-2023TUS105432

PATIENT
  Age: 31 Year
  Sex: Female

DRUGS (1)
  1. IXAZOMIB [Suspect]
     Active Substance: IXAZOMIB
     Indication: Plasma cell myeloma

REACTIONS (5)
  - Gastrointestinal infection [Recovered/Resolved]
  - COVID-19 pneumonia [Unknown]
  - Pneumonia fungal [Unknown]
  - Inappropriate schedule of product administration [Unknown]
  - Illness [Unknown]
